FAERS Safety Report 17535003 (Version 4)
Quarter: 2020Q3

REPORT INFORMATION
  Report Type: Spontaneous
  Country: US (occurrence: US)
  Receive Date: 20200312
  Receipt Date: 20200804
  Transmission Date: 20201102
  Serious: Yes (Other)
  Sender: FDA-Public Use
  Company Number: US-VIFOR (INTERNATIONAL) INC.-VIT-2020-04377

PATIENT
  Age: 88 Year
  Sex: Male

DRUGS (5)
  1. ASPIRIN. [Concomitant]
     Active Substance: ASPIRIN
  2. VELTASSA [Suspect]
     Active Substance: PATIROMER
     Indication: HYPERKALAEMIA
     Dosage: DISSOLVED IN WATER.
     Route: 048
     Dates: start: 20170505
  3. VELTASSA [Suspect]
     Active Substance: PATIROMER
     Route: 048
  4. MULTI VITAMIN [Concomitant]
     Active Substance: VITAMINS
  5. VELTASSA [Suspect]
     Active Substance: PATIROMER
     Route: 048
     Dates: start: 20170425, end: 20200726

REACTIONS (4)
  - Off label use [Unknown]
  - Chronic kidney disease [Unknown]
  - Epilepsy [Unknown]
  - Rash [Unknown]

NARRATIVE: CASE EVENT DATE: 20170505
